FAERS Safety Report 5532102-0 (Version None)
Quarter: 2007Q4

REPORT INFORMATION
  Report Type: 
  Country: None (occurrence: None)
  Receive Date: 20071203
  Receipt Date: 20071129
  Transmission Date: 20080405
  Serious: Yes (Life-Threatening)
  Sender: FDA-Public Use
  Company Number: B0497897A

PATIENT
  Age: 33 Year
  Sex: Female
  Weight: 71.6 kg

DRUGS (2)
  1. COMBIVIR [Suspect]
     Indication: ANTIVIRAL PROPHYLAXIS
     Route: 048
     Dates: start: 20070911, end: 20071121
  2. NEVIRAPINE [Suspect]
     Indication: ANTIVIRAL PROPHYLAXIS
     Dosage: 200MG TWICE PER DAY
     Route: 048
     Dates: start: 20070911, end: 20071121

REACTIONS (6)
  - ABDOMINAL PAIN [None]
  - HEADACHE [None]
  - HYPERTENSION [None]
  - PITTING OEDEMA [None]
  - PRE-ECLAMPSIA [None]
  - PROTEIN URINE PRESENT [None]
